FAERS Safety Report 19429833 (Version 1)
Quarter: 2021Q2

REPORT INFORMATION
  Report Type: Spontaneous
  Country: IN (occurrence: IN)
  Receive Date: 20210617
  Receipt Date: 20210617
  Transmission Date: 20210717
  Serious: Yes (Hospitalization, Other)
  Sender: FDA-Public Use
  Company Number: IN-GLAXOSMITHKLINE-INCH2021GSK037265

PATIENT
  Age: 60 Year
  Sex: Male

DRUGS (1)
  1. DICLOFENAC [Suspect]
     Active Substance: DICLOFENAC
     Indication: HEADACHE
     Dosage: UNK
     Route: 030

REACTIONS (15)
  - Blister [Recovered/Resolved]
  - Klebsiella infection [Recovered/Resolved]
  - Skin discolouration [Recovered/Resolved]
  - Erythema [Recovered/Resolved]
  - Pain [Recovered/Resolved]
  - Red blood cell sedimentation rate increased [Recovered/Resolved]
  - Necrosis [Recovered/Resolved]
  - Eschar [Recovered/Resolved]
  - White blood cell count increased [Recovered/Resolved]
  - Neutrophilia [Recovered/Resolved]
  - Embolia cutis medicamentosa [Recovered/Resolved]
  - Skin burning sensation [Recovered/Resolved]
  - Acinetobacter infection [Recovered/Resolved]
  - Lymphocytic infiltration [Recovered/Resolved]
  - Purulent discharge [Recovered/Resolved]
